FAERS Safety Report 4885722-0 (Version None)
Quarter: 2006Q1

REPORT INFORMATION
  Report Type: 
  Country: None (occurrence: None)
  Receive Date: 20060117
  Receipt Date: 20060105
  Transmission Date: 20060701
  Serious: Yes (Other)
  Sender: FDA-Public Use
  Company Number: 2006-UK-00031UK

PATIENT
  Sex: Male

DRUGS (2)
  1. MORPHINE [Suspect]
  2. NEURONTIN [Suspect]
     Indication: NEURALGIA
     Dosage: 600 MG THREE TIMES A DAY PO
     Route: 048

REACTIONS (4)
  - AGGRESSION [None]
  - MOOD ALTERED [None]
  - PSYCHOTIC DISORDER [None]
  - THINKING ABNORMAL [None]
